FAERS Safety Report 5018387-8 (Version None)
Quarter: 2006Q2

REPORT INFORMATION
  Report Type: 
  Country: None (occurrence: None)
  Receive Date: 20060530
  Receipt Date: 20060519
  Transmission Date: 20061013
  Serious: Yes (Hospitalization)
  Sender: FDA-Public Use
  Company Number: 232917K06USA

PATIENT
  Age: 55 Year
  Sex: Female

DRUGS (2)
  1. REBIF [Suspect]
     Indication: MULTIPLE SCLEROSIS
     Dosage: 8.8 MCG , ONCE
     Dates: start: 20060504, end: 20060504
  2. FLEXERIL [Concomitant]

REACTIONS (6)
  - BONE PAIN [None]
  - FACIAL PALSY [None]
  - INTERVERTEBRAL DISC DEGENERATION [None]
  - INTERVERTEBRAL DISC PROTRUSION [None]
  - OCULAR HYPERAEMIA [None]
  - TREMOR [None]
